FAERS Safety Report 24710870 (Version 3)
Quarter: 2024Q4

REPORT INFORMATION
  Report Type: Report from Study
  Country: PT (occurrence: PT)
  Receive Date: 20241209
  Receipt Date: 20241223
  Transmission Date: 20250115
  Serious: Yes (Hospitalization, Other)
  Sender: ABBVIE
  Company Number: PT-ABBVIE-6020796

PATIENT
  Age: 63 Year
  Sex: Male

DRUGS (17)
  1. CARBIDOPA\LEVODOPA [Suspect]
     Active Substance: CARBIDOPA\LEVODOPA
     Indication: Parkinson^s disease
     Dosage: 20 MG + 5 MG?FREQUENCY TEXT: MORN:12CC; MAINT:3.3CC/H;EXTRA:1.5 CC
     Route: 050
  2. CARBIDOPA\LEVODOPA [Suspect]
     Active Substance: CARBIDOPA\LEVODOPA
     Dosage: 20 MG + 5 MG?FREQUENCY TEXT: MORN:12CC; MAINT:3.3CC/H;EXTRA:1.5 CC
     Route: 050
     Dates: start: 20210826
  3. CARBIDOPA\LEVODOPA [Suspect]
     Active Substance: CARBIDOPA\LEVODOPA
     Dosage: 20 MG + 5 MG
     Route: 050
  4. CLONAZEPAM [Concomitant]
     Active Substance: CLONAZEPAM
     Indication: Product used for unknown indication
     Dosage: 1 TABLET
     Route: 048
  5. CLONAZEPAM [Concomitant]
     Active Substance: CLONAZEPAM
     Indication: Product used for unknown indication
     Dosage: 1 TABLET?FORM STRENGTH: 0.5 MILLIGRAMS?FREQUENCY TEXT: AT BEDTIME?START DATE TEXT: BEFORE DUODOPA
     Route: 048
  6. TRAZODONE [Concomitant]
     Active Substance: TRAZODONE HYDROCHLORIDE
     Indication: Product used for unknown indication
     Dosage: 1 TABLET ?FORM STRENGTH: 100MILLIGRAM?FREQUENCY TEXT: AT BEDTIME?START DATE TEXT: BEFORE DUODOPA
     Route: 048
  7. CLOZAPINE [Concomitant]
     Active Substance: CLOZAPINE
     Indication: Product used for unknown indication
     Route: 048
  8. CLOZAPINE [Concomitant]
     Active Substance: CLOZAPINE
     Indication: Product used for unknown indication
     Dosage: FORM STRENGTH: 100MILLIGRAM?FREQUENCY TEXT: 1/2MORN + 1/2LUNCH + 1BEDTIME?START DATE TEXT: BEFORE...
     Route: 048
  9. SERTRALINE [Concomitant]
     Active Substance: SERTRALINE HYDROCHLORIDE
     Indication: Product used for unknown indication
     Dosage: 2 TABLET?FORM STRENGTH: 50 MILLIGRAM?FREQUENCY TEXT: IN THE MORNING START DATE TEXT: BEFORE DUODOPA
     Route: 048
  10. BENSERAZIDE HYDROCHLORIDE\LEVODOPA [Concomitant]
     Active Substance: BENSERAZIDE HYDROCHLORIDE\LEVODOPA
     Indication: Product used for unknown indication
     Dosage: 2 TABLET?FREQUENCY TEXT: AT BEDTIME?START DATE TEXT: BEFORE DUODOPA
     Route: 048
  11. BUPROPION [Concomitant]
     Active Substance: BUPROPION
     Indication: Product used for unknown indication
     Dosage: 1 TABLET
     Route: 048
  12. BUPROPION [Concomitant]
     Active Substance: BUPROPION
     Indication: Product used for unknown indication
     Dosage: 1 TABLET FREQUENCY TEXT: IN THE MORNING?FORM STRENGTH: 300 MILLIGRAMS?START DATE TEXT: BEFORE DUO...
     Route: 048
  13. ALPRAZOLAM [Concomitant]
     Active Substance: ALPRAZOLAM
     Indication: Product used for unknown indication
     Route: 048
  14. ALPRAZOLAM [Concomitant]
     Active Substance: ALPRAZOLAM
     Indication: Product used for unknown indication
     Dosage: FORM STRENGTH: 1 MILLIGRAM?FREQUENCY TEXT: IN SOS?START DATE TEXT: BEFORE DUODOPA
     Route: 048
  15. CYANOCOBALAMIN;PYRIDOXINE;THIAMINE [Concomitant]
     Indication: Product used for unknown indication
     Dosage: 1 TABLET?START DATE: AFTER START OF LEVODOPA
     Route: 048
  16. BUDESONIDE [Concomitant]
     Active Substance: BUDESONIDE
     Indication: Product used for unknown indication
     Dosage: 400?FREQUENCY TEXT: ONE INHALATION TWICE DAILY?START DATE TEXT: BEFORE DUODOPA
     Route: 055
  17. OLODATEROL\TIOTROPIUM [Concomitant]
     Active Substance: OLODATEROL\TIOTROPIUM
     Indication: Product used for unknown indication
     Dosage: 2.5 + 2.5?FREQUENCY TEXT: TWO INHALATIONS ONCE DAILY?START DATE: BEFORE DUODOPA
     Route: 055

REACTIONS (1)
  - Respiratory tract infection [Recovered/Resolved]

NARRATIVE: CASE EVENT DATE: 20241101
